APPROVED DRUG PRODUCT: TOPIRAMATE
Active Ingredient: TOPIRAMATE
Strength: 200MG
Dosage Form/Route: CAPSULE, EXTENDED RELEASE;ORAL
Application: A208949 | Product #005 | TE Code: AB2
Applicant: ZYDUS WORLDWIDE DMCC
Approved: Nov 29, 2022 | RLD: No | RS: No | Type: RX